FAERS Safety Report 12630973 (Version 2)
Quarter: 2016Q3

REPORT INFORMATION
  Report Type: Spontaneous
  Country: US (occurrence: US)
  Receive Date: 20160808
  Receipt Date: 20160808
  Transmission Date: 20161109
  Serious: No
  Sender: FDA-Public Use
  Company Number: US-BEH-2015051681

PATIENT
  Sex: Female
  Weight: 67.6 kg

DRUGS (19)
  1. CELEXA [Concomitant]
     Active Substance: CITALOPRAM HYDROBROMIDE
  2. DICYCLOMINE HCL [Concomitant]
     Active Substance: DICYCLOMINE HYDROCHLORIDE
  3. ONFI [Concomitant]
     Active Substance: CLOBAZAM
  4. CYCLOBENZAPRINE HCL [Concomitant]
     Active Substance: CYCLOBENZAPRINE HYDROCHLORIDE
  5. PREDNISONE. [Concomitant]
     Active Substance: PREDNISONE
  6. EPIPEN [Concomitant]
     Active Substance: EPINEPHRINE
  7. AMBIEN [Concomitant]
     Active Substance: ZOLPIDEM TARTRATE
  8. ACETAMINOPHEN. [Concomitant]
     Active Substance: ACETAMINOPHEN
  9. DIPHENHYDRAMINE. [Concomitant]
     Active Substance: DIPHENHYDRAMINE
  10. IMITREX [Concomitant]
     Active Substance: SUMATRIPTAN SUCCINATE
  11. RANITIDINE HCL [Concomitant]
     Active Substance: RANITIDINE HYDROCHLORIDE
  12. VIMPAT [Concomitant]
     Active Substance: LACOSAMIDE
  13. XANAX [Concomitant]
     Active Substance: ALPRAZOLAM
  14. TRILEPTAL [Concomitant]
     Active Substance: OXCARBAZEPINE
  15. XYZAL [Concomitant]
     Active Substance: LEVOCETIRIZINE DIHYDROCHLORIDE
  16. LIDOCAINE. [Concomitant]
     Active Substance: LIDOCAINE
  17. ZANTAC [Concomitant]
     Active Substance: RANITIDINE HYDROCHLORIDE
  18. HIZENTRA [Suspect]
     Active Substance: HUMAN IMMUNOGLOBULIN G
     Indication: IMMUNODEFICIENCY COMMON VARIABLE
     Route: 058
  19. QVAR [Concomitant]
     Active Substance: BECLOMETHASONE DIPROPIONATE

REACTIONS (1)
  - Weight increased [Unknown]
